FAERS Safety Report 10176896 (Version 1)
Quarter: 2014Q2

REPORT INFORMATION
  Report Type: Spontaneous
  Country: US (occurrence: US)
  Receive Date: 20140516
  Receipt Date: 20140516
  Transmission Date: 20141212
  Serious: Yes (Other)
  Sender: FDA-Public Use
  Company Number: US-UCBSA-120436

PATIENT
  Sex: 0

DRUGS (1)
  1. KEPPRA [Suspect]

REACTIONS (1)
  - Coma [Unknown]
